FAERS Safety Report 9127062 (Version 1)
Quarter: 2013Q1

REPORT INFORMATION
  Report Type: Report from Study
  Country: US (occurrence: US)
  Receive Date: 20130122
  Receipt Date: 20130122
  Transmission Date: 20140127
  Serious: Yes (Life-Threatening, Hospitalization)
  Sender: FDA-Public Use
  Company Number: 2013SP000084

PATIENT
  Age: 50 Year
  Sex: Female
  Weight: 137 kg

DRUGS (15)
  1. BLINDED THERAPY [Suspect]
     Indication: RHINITIS PERENNIAL
     Route: 045
     Dates: start: 20121206, end: 20121224
  2. CELECOXIB [Concomitant]
     Indication: ARTHRITIS
     Route: 048
     Dates: start: 2009, end: 20121224
  3. ESCITALOPRAM [Concomitant]
     Indication: ANXIETY
     Route: 048
     Dates: start: 2002
  4. MULTIVITAMINS, COMBINATIONS [Concomitant]
     Indication: MEDICAL DIET
     Route: 048
     Dates: start: 2005
  5. CALCIUM [Concomitant]
     Indication: MEDICAL DIET
     Route: 048
     Dates: start: 2005
  6. CYANOCOBALAMIN [Concomitant]
     Indication: ANAEMIA
     Route: 030
     Dates: start: 2009
  7. VITAMIN D NOS [Concomitant]
     Indication: MEDICAL DIET
     Route: 048
     Dates: start: 2009
  8. VITAMIN E /05494901/ [Concomitant]
     Indication: MEDICAL DIET
     Route: 048
     Dates: start: 2009
  9. NAPROXEN [Concomitant]
     Indication: ROTATOR CUFF SYNDROME
     Route: 048
     Dates: start: 20121118
  10. HORMONES AND RELATED AGENTS [Concomitant]
     Indication: MENOPAUSAL SYMPTOMS
     Route: 062
     Dates: start: 2010, end: 20121224
  11. B12-VITAMIN [Concomitant]
     Indication: ANAEMIA
     Route: 030
     Dates: start: 2009
  12. FISH OIL [Concomitant]
     Indication: MEDICAL DIET
     Route: 048
     Dates: start: 2005
  13. DIPHENHYDRAMINE [Concomitant]
     Indication: RHINITIS ALLERGIC
     Route: 048
     Dates: start: 2009
  14. ACETAMINOPHEN [Concomitant]
     Indication: HEADACHE
     Route: 048
     Dates: start: 2005
  15. ACETAMINOPHEN [Concomitant]
     Indication: ARTHRITIS
     Route: 048
     Dates: start: 2005

REACTIONS (1)
  - Pulmonary embolism [Recovering/Resolving]
